FAERS Safety Report 8535662-0 (Version None)
Quarter: 2012Q3

REPORT INFORMATION
  Report Type: 
  Country: None (occurrence: None)
  Receive Date: 20120725
  Receipt Date: 20120720
  Transmission Date: 20120928
  Serious: No
  Sender: FDA-Public Use
  Company Number: US-PFIZER INC-2012176664

PATIENT
  Sex: Male
  Weight: 76 kg

DRUGS (2)
  1. LYRICA [Suspect]
     Indication: PAIN
     Dosage: 200 MG, 2X/DAY
     Route: 048
  2. LYRICA [Suspect]
     Dosage: 300 MG, 3X/DAY
     Route: 048
     Dates: end: 20120201

REACTIONS (1)
  - PAIN [None]
